FAERS Safety Report 6471749-4 (Version None)
Quarter: 2009Q4

REPORT INFORMATION
  Report Type: 
  Country: None (occurrence: None)
  Receive Date: 20091203
  Receipt Date: 20080315
  Transmission Date: 20100525
  Serious: Yes (Hospitalization, Other)
  Sender: FDA-Public Use
  Company Number: US-ELI_LILLY_AND_COMPANY-US200803004300

PATIENT
  Sex: Female
  Weight: 81.633 kg

DRUGS (12)
  1. BYETTA [Suspect]
     Indication: TYPE 2 DIABETES MELLITUS
     Dosage: 5 UG, 2/D
     Route: 058
     Dates: start: 20050601, end: 20050701
  2. BYETTA [Suspect]
     Dosage: 10 UG, DAILY (1/D)
     Route: 058
     Dates: start: 20050701, end: 20050701
  3. BYETTA [Suspect]
     Dosage: 10 UG, 2/D
     Route: 058
     Dates: start: 20050701, end: 20061101
  4. BYETTA [Suspect]
     Dosage: 10 UG, 2/D
     Route: 058
     Dates: start: 20070101
  5. GLUCOPHAGE [Concomitant]
     Indication: TYPE 2 DIABETES MELLITUS
     Dosage: 1000 MG, 2/D
     Route: 048
     Dates: start: 20030101
  6. PRECOSE [Concomitant]
     Indication: TYPE 2 DIABETES MELLITUS
     Dosage: 100 MG, 3/D
     Route: 048
     Dates: start: 20040101
  7. NOVOLOG MIX 70/30 [Concomitant]
     Indication: TYPE 2 DIABETES MELLITUS
     Dosage: 20 U, EACH MORNING
     Route: 058
     Dates: start: 20080101
  8. NOVOLOG MIX 70/30 [Concomitant]
     Dosage: 15 U, EACH EVENING
     Route: 058
     Dates: start: 20080101
  9. NOVOLIN [Concomitant]
     Indication: TYPE 2 DIABETES MELLITUS
     Dosage: 15 U, AS NEEDED
     Route: 058
     Dates: start: 20080101
  10. DIOVAN [Concomitant]
     Indication: PROPHYLAXIS
     Dosage: 80 MG, 2/D
     Route: 048
     Dates: start: 20070901
  11. ASPIRIN [Concomitant]
     Indication: CARDIOVASCULAR EVENT PROPHYLAXIS
     Dosage: 81 MG, DAILY (1/D)
     Route: 048
  12. LYRICA [Concomitant]
     Indication: NEURALGIA
     Dosage: 25 MG, DAILY (1/D)
     Route: 048

REACTIONS (10)
  - ABDOMINAL DISTENSION [None]
  - BACK PAIN [None]
  - BLOOD GLUCOSE DECREASED [None]
  - EARLY SATIETY [None]
  - FALL [None]
  - INCONTINENCE [None]
  - INTERVERTEBRAL DISC DISORDER [None]
  - LOSS OF CONSCIOUSNESS [None]
  - MOBILITY DECREASED [None]
  - NAUSEA [None]
